FAERS Safety Report 20647078 (Version 1)
Quarter: 2022Q1

REPORT INFORMATION
  Report Type: Other
  Country: US (occurrence: US)
  Receive Date: 20220329
  Receipt Date: 20220329
  Transmission Date: 20220423
  Serious: Yes (Hospitalization)
  Sender: FDA-Public Use
  Company Number: US-DEXPHARM-20220366

PATIENT
  Age: 88 Year
  Sex: Female

DRUGS (5)
  1. DONEPEZIL [Interacting]
     Active Substance: DONEPEZIL
  2. ANASTROZOLE [Interacting]
     Active Substance: ANASTROZOLE
     Indication: Breast cancer
  3. LOSARTAN [Interacting]
     Active Substance: LOSARTAN
  4. MEMANTINE [Interacting]
     Active Substance: MEMANTINE
  5. MIRTAZAPINE [Interacting]
     Active Substance: MIRTAZAPINE

REACTIONS (2)
  - Sialoadenitis [Recovering/Resolving]
  - Drug interaction [Recovering/Resolving]
